FAERS Safety Report 5103683-6 (Version None)
Quarter: 2006Q3

REPORT INFORMATION
  Report Type: 
  Country: None (occurrence: None)
  Receive Date: 20060911
  Receipt Date: 20060911
  Transmission Date: 20061208
  Serious: Yes (Death, Hospitalization)
  Sender: FDA-Public Use
  Company Number: None

PATIENT
  Age: 77 Year
  Sex: Female

DRUGS (6)
  1. RITUXIMAB [Suspect]
     Indication: MANTLE CELL LYMPHOMA
  2. THALIDOMIDE [Suspect]
     Indication: MANTLE CELL LYMPHOMA
  3. PREDNISONE TAB [Suspect]
     Indication: MANTLE CELL LYMPHOMA
  4. ETOPOSIDE [Suspect]
     Indication: MANTLE CELL LYMPHOMA
  5. PROCARBAZINE [Suspect]
     Indication: MANTLE CELL LYMPHOMA
  6. CYTOXAN [Suspect]
     Indication: MANTLE CELL LYMPHOMA

REACTIONS (2)
  - GASTROINTESTINAL HAEMORRHAGE [None]
  - RESPIRATORY DISTRESS [None]
